FAERS Safety Report 7750390-7 (Version None)
Quarter: 2011Q3

REPORT INFORMATION
  Report Type: 
  Country: None (occurrence: None)
  Receive Date: 20110914
  Receipt Date: 20110909
  Transmission Date: 20111222
  Serious: Yes (Hospitalization, Other)
  Sender: FDA-Public Use
  Company Number: US-ABBOTT-11P-163-0853709-00

PATIENT
  Age: 40 Year
  Sex: Male

DRUGS (5)
  1. HUMIRA [Suspect]
     Indication: CROHN'S DISEASE
     Dates: start: 20090101
  2. AMBIEN [Concomitant]
     Indication: INSOMNIA
     Dosage: AS NEEDED
  3. ANTIBIOTIC [Concomitant]
     Indication: CROHN'S DISEASE
     Dosage: FROM TIME TO TIME
  4. DILAUDID [Concomitant]
     Indication: PAIN
     Dosage: AS NEEDED
  5. COMPAZINE [Concomitant]
     Indication: NAUSEA
     Dosage: AS NEEDED

REACTIONS (12)
  - HEADACHE [None]
  - DRY MOUTH [None]
  - PANCREATIC ENZYMES INCREASED [None]
  - FLUID INTAKE REDUCED [None]
  - VOMITING [None]
  - ABDOMINAL PAIN [None]
  - NEPHROLITHIASIS [None]
  - DEHYDRATION [None]
  - APHAGIA [None]
  - NAUSEA [None]
  - DRY SKIN [None]
  - MALAISE [None]
